FAERS Safety Report 5511349-3 (Version None)
Quarter: 2007Q4

REPORT INFORMATION
  Report Type: 
  Country: None (occurrence: None)
  Receive Date: 20071109
  Receipt Date: 20070927
  Transmission Date: 20080405
  Serious: No
  Sender: FDA-Public Use
  Company Number: A0679681A

PATIENT
  Age: 71 Year
  Sex: Female

DRUGS (4)
  1. ALTABAX [Suspect]
     Route: 061
     Dates: start: 20070904, end: 20070905
  2. METHYLDOPA/HYDROCHLOROTHIAZIDE [Concomitant]
  3. TRENTAL [Concomitant]
  4. MUPIROCIN [Concomitant]

REACTIONS (4)
  - BURNING SENSATION [None]
  - ILL-DEFINED DISORDER [None]
  - PAIN [None]
  - SKIN ULCER [None]
